FAERS Safety Report 7759842-7 (Version None)
Quarter: 2011Q3

REPORT INFORMATION
  Report Type: 
  Country: None (occurrence: None)
  Receive Date: 20110919
  Receipt Date: 20110908
  Transmission Date: 20111222
  Serious: Yes (Other)
  Sender: FDA-Public Use
  Company Number: CA-JNJFOC-20110904820

PATIENT
  Sex: Male
  Weight: 108.5 kg

DRUGS (7)
  1. REMICADE [Suspect]
     Indication: RHEUMATOID ARTHRITIS
     Route: 042
     Dates: start: 20061101
  2. VERAPAMIL [Concomitant]
  3. DIDROCAL [Concomitant]
  4. REMICADE [Suspect]
     Dosage: TOTAL OF 42 INFUSIONS
     Route: 042
     Dates: start: 20110901
  5. PREDNISONE [Concomitant]
  6. NEXIUM [Concomitant]
  7. METHOTREXATE [Concomitant]

REACTIONS (1)
  - ARTHROSCOPY [None]
